FAERS Safety Report 12919293 (Version 7)
Quarter: 2017Q1

REPORT INFORMATION
  Report Type: Report from Study
  Country: AU (occurrence: AU)
  Receive Date: 20161108
  Receipt Date: 20170201
  Transmission Date: 20170428
  Serious: Yes (Hospitalization, Other)
  Sender: FDA-Public Use
  Company Number: AU-ROCHE-1851347

PATIENT
  Age: 77 Year
  Sex: Female

DRUGS (7)
  1. ACTEMRA [Suspect]
     Active Substance: TOCILIZUMAB
     Indication: RHEUMATOID ARTHRITIS
     Route: 042
     Dates: start: 20101102, end: 20101102
  2. WARFARIN [Concomitant]
     Active Substance: WARFARIN
     Indication: ATRIAL FIBRILLATION
     Dosage: ONGOING 2/3 MG
     Route: 048
     Dates: start: 2013
  3. FUROSEMIDE. [Concomitant]
     Active Substance: FUROSEMIDE
     Dosage: ONGOING
     Route: 048
     Dates: start: 201511
  4. FOLIC ACID. [Concomitant]
     Active Substance: FOLIC ACID
     Dosage: STARTED ABOUT 10 YEARS AGO
     Route: 065
  5. ACTEMRA [Suspect]
     Active Substance: TOCILIZUMAB
     Route: 042
     Dates: start: 20150626
  6. METOPROLOL. [Concomitant]
     Active Substance: METOPROLOL
     Dosage: ONGOING
     Route: 048
     Dates: start: 2011
  7. SPIROLACTONE [Concomitant]
     Active Substance: SPIRONOLACTONE
     Route: 065
     Dates: start: 201605

REACTIONS (4)
  - Anxiety [Unknown]
  - Fall [Unknown]
  - Pelvic fracture [Recovering/Resolving]
  - Sjogren^s syndrome [Not Recovered/Not Resolved]

NARRATIVE: CASE EVENT DATE: 20161029
